FAERS Safety Report 5880765-2 (Version None)
Quarter: 2008Q3

REPORT INFORMATION
  Report Type: 
  Country: None (occurrence: None)
  Receive Date: 20080912
  Receipt Date: 20080609
  Transmission Date: 20090109
  Serious: No
  Sender: FDA-Public Use
  Company Number: US-ABBOTT-08P-163-0456043-00

PATIENT
  Sex: Female
  Weight: 64.468 kg

DRUGS (7)
  1. HUMIRA [Suspect]
     Indication: RHEUMATOID ARTHRITIS
     Route: 058
     Dates: start: 20050501
  2. METHOTREXATE [Concomitant]
     Indication: RHEUMATOID ARTHRITIS
     Dosage: THREE PILLS EVERY FRIDAY
     Route: 048
     Dates: start: 20050501
  3. CENTRUM SILVER [Concomitant]
     Indication: VITAMIN SUPPLEMENTATION
     Dosage: ONE A DAY
     Route: 048
  4. ERGOCALCIFEROL [Concomitant]
     Indication: VITAMIN D
     Route: 048
  5. LEVOTHYROXINE SODIUM [Concomitant]
     Indication: HYPOTHYROIDISM
     Dosage: GENERIC
     Route: 048
  6. FISH OIL [Concomitant]
     Indication: MEDICAL DIET
     Dosage: ONE A DAY
     Route: 048
  7. ACETYLSALICYLIC ACID SRT [Concomitant]
     Indication: CARDIOVASCULAR EVENT PROPHYLAXIS
     Route: 048

REACTIONS (2)
  - BLISTER [None]
  - RASH [None]
